FAERS Safety Report 5483542-X (Version None)
Quarter: 2007Q4

REPORT INFORMATION
  Report Type: 
  Country: None (occurrence: None)
  Receive Date: 20071009
  Receipt Date: 20070928
  Transmission Date: 20080405
  Serious: Yes (Life-Threatening, Hospitalization, Disabling, Other)
  Sender: FDA-Public Use
  Company Number: 238283K07USA

PATIENT
  Age: 52 Year
  Sex: Female
  Weight: 103.4201 kg

DRUGS (2)
  1. REBIF [Suspect]
     Indication: MULTIPLE SCLEROSIS
     Dosage: 44 MCG, 3 IN 1 WEEKS, SUBCUTANEOUS
     Route: 058
     Dates: start: 20061018, end: 20070401
  2. OXYCODONE HCL [Concomitant]

REACTIONS (8)
  - ABASIA [None]
  - BONE MARROW FAILURE [None]
  - COMA [None]
  - DIABETES MELLITUS [None]
  - EFFUSION [None]
  - FALL [None]
  - HEPATIC FAILURE [None]
  - PANCREATIC INSUFFICIENCY [None]
